FAERS Safety Report 6487649-X (Version None)
Quarter: 2009Q4

REPORT INFORMATION
  Report Type: 
  Country: None (occurrence: None)
  Receive Date: 20091210
  Receipt Date: 20090819
  Transmission Date: 20100525
  Serious: No
  Sender: FDA-Public Use
  Company Number: US-AMGEN-KDL360821

PATIENT
  Sex: Female

DRUGS (3)
  1. ENBREL [Suspect]
     Indication: RHEUMATOID ARTHRITIS
     Route: 058
     Dates: start: 20090810
  2. SULFASALAZINE [Concomitant]
     Route: 048
  3. PLAQUENIL [Concomitant]
     Route: 048

REACTIONS (6)
  - CHILLS [None]
  - EYELID OEDEMA [None]
  - HEADACHE [None]
  - HOT FLUSH [None]
  - NIGHT SWEATS [None]
  - SWELLING FACE [None]
